FAERS Safety Report 19144762 (Version 1)
Quarter: 2021Q2

REPORT INFORMATION
  Report Type: Spontaneous
  Country: US (occurrence: US)
  Receive Date: 20210415
  Receipt Date: 20210415
  Transmission Date: 20210717
  Serious: Yes (Death)
  Sender: FDA-Public Use
  Company Number: None

PATIENT
  Sex: Female

DRUGS (4)
  1. HYDROCO/APAP [Concomitant]
     Active Substance: ACETAMINOPHEN\HYDROCODONE
  2. ONUREG [Suspect]
     Active Substance: AZACITIDINE
     Indication: ACUTE MYELOID LEUKAEMIA
     Dosage: ROUTE: 2 WK ON ? 2 WK OFF
     Route: 048
     Dates: start: 20210228
  3. CEPHALEXIN. [Concomitant]
     Active Substance: CEPHALEXIN
  4. RYDAPT [Suspect]
     Active Substance: MIDOSTAURIN
     Indication: ACUTE MYELOID LEUKAEMIA
     Dosage: ROUTE: 14D ON ? 14 D OFF
     Route: 048
     Dates: start: 20210228

REACTIONS (1)
  - Death [None]
